FAERS Safety Report 4580164-X (Version None)
Quarter: 2005Q1

REPORT INFORMATION
  Report Type: 
  Country: None (occurrence: None)
  Receive Date: 20050214
  Receipt Date: 20050207
  Transmission Date: 20050727
  Serious: Yes (Death)
  Sender: FDA-Public Use
  Company Number: US-JNJFOC-20050201975

PATIENT
  Age: 19 Year
  Sex: Male

DRUGS (1)
  1. DURAGESIC [Suspect]
     Route: 060

REACTIONS (1)
  - DRUG ABUSER [None]
